FAERS Safety Report 6937019-2 (Version None)
Quarter: 2010Q3

REPORT INFORMATION
  Report Type: 
  Country: None (occurrence: None)
  Receive Date: 20100823
  Receipt Date: 20100809
  Transmission Date: 20110219
  Serious: Yes (Other)
  Sender: FDA-Public Use
  Company Number: PHHY2010JP08075

PATIENT
  Sex: Male

DRUGS (11)
  1. TASIGNA [Suspect]
     Indication: CHRONIC MYELOID LEUKAEMIA
     Dosage: 400 MG DAILY
     Route: 048
     Dates: start: 20091001, end: 20091118
  2. TASIGNA [Suspect]
     Dosage: 200 MG DAILY
     Route: 048
     Dates: start: 20091216, end: 20100119
  3. TASIGNA [Suspect]
     Dosage: 200 MG ALTERNATE DAY
     Route: 048
     Dates: start: 20100120, end: 20100202
  4. TASIGNA [Suspect]
     Dosage: 200 MG, QW
     Route: 048
     Dates: start: 20100303
  5. ZYLORIC [Concomitant]
     Dosage: 200 MG, UNK
     Route: 048
  6. DEPAKENE [Concomitant]
     Dosage: 800 MG, UNK
     Route: 048
  7. PROMAC [Concomitant]
     Dosage: 1 G, UNK
     Route: 048
  8. TANNALBIN [Concomitant]
     Dosage: 2 G, UNK
     Route: 048
     Dates: end: 20091028
  9. AMLODIPINE BESYLATE [Concomitant]
     Dosage: 2.5 MG, UNK
     Route: 048
  10. AMOBAN [Concomitant]
     Dosage: 7.5 MG, UNK
     Route: 048
  11. ITRIZOLE [Concomitant]
     Dosage: 100 MG DAILY
     Route: 048
     Dates: end: 20100107

REACTIONS (1)
  - THROMBOCYTOPENIA [None]
